FAERS Safety Report 17661342 (Version 1)
Quarter: 2020Q2

REPORT INFORMATION
  Report Type: Spontaneous
  Country: CN (occurrence: CN)
  Receive Date: 20200413
  Receipt Date: 20200413
  Transmission Date: 20200713
  Serious: Yes (Hospitalization)
  Sender: FDA-Public Use
  Company Number: CN-ROCHE-2577922

PATIENT
  Age: 49 Year
  Sex: Male
  Weight: 61 kg

DRUGS (2)
  1. IRINOTECAN HYDROCHLORIDE. [Suspect]
     Active Substance: IRINOTECAN HYDROCHLORIDE
     Indication: SMALL INTESTINE ADENOCARCINOMA
     Route: 041
     Dates: start: 20200303, end: 20200303
  2. XELODA [Suspect]
     Active Substance: CAPECITABINE
     Indication: SMALL INTESTINE ADENOCARCINOMA
     Route: 048
     Dates: start: 20200303, end: 20200305

REACTIONS (5)
  - Blood bilirubin increased [Recovering/Resolving]
  - Febrile neutropenia [Recovering/Resolving]
  - Bone marrow failure [Recovering/Resolving]
  - Off label use [Unknown]
  - Intentional product use issue [Unknown]

NARRATIVE: CASE EVENT DATE: 20200304
